FAERS Safety Report 7680666-3 (Version None)
Quarter: 2011Q3

REPORT INFORMATION
  Report Type: 
  Country: None (occurrence: None)
  Receive Date: 20110812
  Receipt Date: 20110810
  Transmission Date: 20111222
  Serious: Yes (Death, Other)
  Sender: FDA-Public Use
  Company Number: CO-PFIZER INC-2011161965

PATIENT
  Sex: Male

DRUGS (2)
  1. TYGACIL [Concomitant]
     Indication: ACINETOBACTER INFECTION
     Dosage: 50 MG, 2X/DAY
     Dates: start: 20110701
  2. CEFOPERAZONE SODIUM [Suspect]
     Indication: PNEUMONIA BACTERIAL
     Dosage: 3 G, 3X/DAY
     Dates: start: 20110712, end: 20110715

REACTIONS (2)
  - GASTROINTESTINAL HAEMORRHAGE [None]
  - HAEMORRHAGE [None]
